FAERS Safety Report 10102416 (Version 1)
Quarter: 2014Q2

REPORT INFORMATION
  Report Type: Spontaneous
  Country: US (occurrence: US)
  Receive Date: 20140424
  Receipt Date: 20140424
  Transmission Date: 20141212
  Serious: Yes (Hospitalization)
  Sender: FDA-Public Use
  Company Number: PHHY2014US046610

PATIENT
  Age: 61 Year
  Sex: Female

DRUGS (1)
  1. HYDRALAZINE [Suspect]
     Indication: HYPERTENSION
     Dosage: 100 MG, TID

REACTIONS (9)
  - Acute febrile neutrophilic dermatosis [Unknown]
  - Glomerulonephritis rapidly progressive [Unknown]
  - Pyrexia [Unknown]
  - Fatigue [Unknown]
  - Oropharyngeal pain [Unknown]
  - Chromaturia [Unknown]
  - Rash papular [Unknown]
  - Blood creatinine increased [Unknown]
  - Neutrophilic dermatosis [Unknown]
